FAERS Safety Report 5016677-6 (Version None)
Quarter: 2006Q2

REPORT INFORMATION
  Report Type: 
  Country: None (occurrence: None)
  Receive Date: 20060602
  Receipt Date: 20060523
  Transmission Date: 20061013
  Serious: Yes (Other)
  Sender: FDA-Public Use
  Company Number: 2006CG00921

PATIENT
  Age: 60 Year
  Sex: Female

DRUGS (2)
  1. FASLODEX [Suspect]
     Indication: BREAST CANCER
     Route: 030
     Dates: start: 20050101, end: 20051101
  2. FASLODEX [Suspect]
     Route: 030
     Dates: start: 20050101

REACTIONS (2)
  - HIP ARTHROPLASTY [None]
  - THROMBOCYTOPENIA [None]
